FAERS Safety Report 9993150 (Version 1)
Quarter: 2014Q1

REPORT INFORMATION
  Report Type: Report from Study
  Country: US (occurrence: US)
  Receive Date: 20140310
  Receipt Date: 20140310
  Transmission Date: 20141002
  Serious: Yes (Other)
  Sender: FDA-Public Use
  Company Number: US-ABBVIE-14P-163-1206565-00

PATIENT
  Age: 55 Year
  Sex: Female

DRUGS (6)
  1. HUMIRA [Suspect]
     Indication: PSORIATIC ARTHROPATHY
     Dates: start: 20140129
  2. DEPAKOTE [Concomitant]
     Indication: CONVULSION
  3. DEPAKOTE [Concomitant]
     Indication: PRURITUS
  4. BACLOFEN [Concomitant]
     Indication: MUSCLE SPASMS
  5. BACLOFEN [Concomitant]
     Indication: ARTHRALGIA
     Dosage: 5/325 MG
  6. BACLOFEN [Concomitant]

REACTIONS (4)
  - Rhabdomyolysis [Not Recovered/Not Resolved]
  - Muscular weakness [Not Recovered/Not Resolved]
  - Joint swelling [Not Recovered/Not Resolved]
  - Arthralgia [Not Recovered/Not Resolved]
